FAERS Safety Report 15932765 (Version 1)
Quarter: 2019Q1

REPORT INFORMATION
  Report Type: Other
  Country: US (occurrence: US)
  Receive Date: 20190207
  Receipt Date: 20190207
  Transmission Date: 20190417
  Serious: No
  Sender: FDA-Public Use
  Company Number: US-SLATE RUN PHARMACEUTICALS-SLTR-AE-19-4

PATIENT
  Age: 14 Month
  Sex: Male

DRUGS (6)
  1. RENAGEL [Concomitant]
     Active Substance: SEVELAMER HYDROCHLORIDE
  2. 70436-007-04 CINACALCET HYDROCHLORIDE TABLET 30MG [Suspect]
     Active Substance: CINACALCET HYDROCHLORIDE
     Indication: HYPERPARATHYROIDISM
     Dosage: INITIAL DOSE 0.78 (MG/KG/DAY)
  3. 70436-007-04 CINACALCET HYDROCHLORIDE TABLET 30MG [Suspect]
     Active Substance: CINACALCET HYDROCHLORIDE
     Indication: HYPERPARATHYROIDISM
     Dosage: PEAK EFFECTIVE DOSE  3.13  (MG/KG/DAY)
  4. RENVELA [Concomitant]
     Active Substance: SEVELAMER CARBONATE
  5. ERGOCALCIFEROL. [Suspect]
     Active Substance: ERGOCALCIFEROL
  6. CALCIUM SUPPLEMENT [Concomitant]
     Active Substance: CALCIUM
     Dosage: EITHER CALCIUM CARBONATE OR CALCIUM GLUBIONATE WAS PRESCRIBED.

REACTIONS (3)
  - Hypercalcaemia [Unknown]
  - Hypocalcaemia [Unknown]
  - Off label use [Unknown]
